FAERS Safety Report 5268101-6 (Version None)
Quarter: 2007Q1

REPORT INFORMATION
  Report Type: 
  Country: None (occurrence: None)
  Receive Date: 20070319
  Receipt Date: 20070306
  Transmission Date: 20070707
  Serious: Yes (Hospitalization)
  Sender: FDA-Public Use
  Company Number: PHBS2007JP04245

PATIENT
  Age: 59 Year
  Sex: Female

DRUGS (6)
  1. DIOVAN [Suspect]
     Indication: HYPERTENSION
     Dosage: 80 MG, BID
     Route: 048
  2. AMLODIN [Concomitant]
  3. FLUITRAN [Concomitant]
  4. SOLON [Concomitant]
     Route: 048
  5. ULGUT [Concomitant]
  6. ALTAT [Concomitant]

REACTIONS (2)
  - COMPLICATED FRACTURE [None]
  - HYPOAESTHESIA FACIAL [None]
